FAERS Safety Report 10052485 (Version 1)
Quarter: 2014Q2

REPORT INFORMATION
  Report Type: Spontaneous
  Country: IT (occurrence: IT)
  Receive Date: 20140402
  Receipt Date: 20140402
  Transmission Date: 20141212
  Serious: Yes (Hospitalization)
  Sender: FDA-Public Use
  Company Number: IT-BAYER-2014-042279

PATIENT
  Age: 88 Year
  Sex: Male

DRUGS (9)
  1. CARDIOASPIRIN [Suspect]
     Indication: HEART DISEASE CONGENITAL
     Dosage: DAILY DOSE 100 MG
     Dates: start: 20120101, end: 20140222
  2. COUMADIN [Interacting]
     Indication: ATRIAL FIBRILLATION
     Dosage: UNK
     Dates: start: 20120101, end: 20140222
  3. COUMADIN [Interacting]
     Indication: ATRIAL FIBRILLATION
  4. PARACETAMOL [Concomitant]
     Dosage: DAILY DOSE 1000 MG
  5. CARDICOR [Concomitant]
     Indication: HEART DISEASE CONGENITAL
     Dosage: DAILY DOSE 1.25 MG
  6. LASITONE [Concomitant]
     Indication: HYPERTENSION
     Dosage: DAILY DOSE 1 DF
  7. TOTALIP [Concomitant]
     Indication: DYSLIPIDAEMIA
     Dosage: DAILY DOSE 20 MG
  8. PANTOPAN [Concomitant]
     Dosage: DAILY DOSE 40 MG
  9. DEPONIT [Concomitant]
     Dosage: DAILY DOSE 5 MG
     Route: 062

REACTIONS (2)
  - Thrombocytopenia [Recovering/Resolving]
  - Labelled drug-drug interaction medication error [None]
